FAERS Safety Report 7127591-4 (Version None)
Quarter: 2010Q4

REPORT INFORMATION
  Report Type: 
  Country: None (occurrence: None)
  Receive Date: 20101129
  Receipt Date: 20101117
  Transmission Date: 20110411
  Serious: Yes (Death, Hospitalization, Other)
  Sender: FDA-Public Use
  Company Number: JP-BRISTOL-MYERS SQUIBB COMPANY-15406069

PATIENT
  Age: 75 Year
  Sex: Male

DRUGS (2)
  1. MITOMYCIN [Suspect]
     Indication: METASTASES TO LIVER
     Dosage: FORM: INJECTION; 10 TIMES.
     Route: 013
  2. FLUOROURACIL [Suspect]
     Indication: METASTASES TO LIVER
     Dosage: 5-FU INJECTION 250 KYOWA; 6 TIMES.
     Route: 013

REACTIONS (6)
  - ANAEMIA [None]
  - ASCITES [None]
  - BILIARY FISTULA [None]
  - BILOMA [None]
  - DUODENAL ULCER HAEMORRHAGE [None]
  - SEPSIS [None]
